FAERS Safety Report 21015368 (Version 2)
Quarter: 2022Q3

REPORT INFORMATION
  Report Type: Spontaneous
  Country: US (occurrence: None)
  Receive Date: 20220628
  Receipt Date: 20220728
  Transmission Date: 20221026
  Serious: No
  Sender: FDA-Public Use
  Company Number: 2022A220950

PATIENT
  Age: 864 Month
  Sex: Female
  Weight: 70.8 kg

DRUGS (2)
  1. BUDESONIDE\FORMOTEROL\GLYCOPYRRONIUM [Suspect]
     Active Substance: BUDESONIDE\FORMOTEROL\GLYCOPYRRONIUM
     Indication: Asthma
     Dosage: 2 PUFFS
     Route: 055
     Dates: start: 20210827
  2. BUDESONIDE\FORMOTEROL\GLYCOPYRRONIUM [Suspect]
     Active Substance: BUDESONIDE\FORMOTEROL\GLYCOPYRRONIUM
     Indication: Asthma
     Dosage: 2 PUFFS
     Route: 055
     Dates: start: 202109

REACTIONS (9)
  - Chest pain [Unknown]
  - Asthma [Unknown]
  - Product dose omission in error [Recovered/Resolved]
  - Wrong technique in device usage process [Recovered/Resolved]
  - Intentional device misuse [Not Recovered/Not Resolved]
  - Device use issue [Not Recovered/Not Resolved]
  - Product prescribing issue [Unknown]
  - Device malfunction [Unknown]
  - Drug dose omission by device [Recovered/Resolved]

NARRATIVE: CASE EVENT DATE: 20210901
